FAERS Safety Report 16583641 (Version 1)
Quarter: 2019Q3

REPORT INFORMATION
  Report Type: Spontaneous
  Country: FR (occurrence: FR)
  Receive Date: 20190717
  Receipt Date: 20190717
  Transmission Date: 20191004
  Serious: Yes (Life-Threatening)
  Sender: FDA-Public Use
  Company Number: FR-TEVA-2019-FR-1077212

PATIENT
  Age: 10 Month
  Sex: Female
  Weight: 9.3 kg

DRUGS (4)
  1. DIACOMIT [Suspect]
     Active Substance: STIRIPENTOL
     Indication: EPILEPSY
     Route: 048
     Dates: start: 20190428, end: 20190621
  2. AMOXICILLINE [Suspect]
     Active Substance: AMOXICILLIN
     Indication: EAR INFECTION
     Dosage: 80 MG/KG DAILY;
     Dates: start: 20190612, end: 20190617
  3. DEPAKINE 200 MG/ML, SOLUTION BUVABLE [Concomitant]
     Active Substance: VALPROATE SODIUM
     Indication: EPILEPSY
     Route: 048
     Dates: end: 20190618
  4. LIKOZAM 1 MG/ML, SUSPENSION BUVABLE [Concomitant]
     Indication: EPILEPSY
     Route: 048

REACTIONS (1)
  - Drug reaction with eosinophilia and systemic symptoms [Recovered/Resolved]

NARRATIVE: CASE EVENT DATE: 20190613
